FAERS Safety Report 6367165-6 (Version None)
Quarter: 2009Q3

REPORT INFORMATION
  Report Type: 
  Country: None (occurrence: None)
  Receive Date: 20090921
  Receipt Date: 20090716
  Transmission Date: 20100115
  Serious: No
  Sender: FDA-Public Use
  Company Number: US-BAYER-200927408NA

PATIENT
  Age: 35 Year
  Sex: Female
  Weight: 68 kg

DRUGS (2)
  1. MIRENA [Suspect]
     Indication: CONTRACEPTION
     Dosage: CONTINUOUS DELIVERY
     Route: 015
     Dates: start: 20090610
  2. VITAMIN TAB [Concomitant]

REACTIONS (1)
  - MENORRHAGIA [None]
